FAERS Safety Report 8779505 (Version 13)
Quarter: 2019Q2

REPORT INFORMATION
  Report Type: Spontaneous
  Country: US (occurrence: US)
  Receive Date: 20120917
  Receipt Date: 20190628
  Transmission Date: 20190711
  Serious: Yes (Hospitalization, Other)
  Sender: FDA-Public Use
  Company Number: US-ASTRAZENECA-2012SE70431

PATIENT
  Age: 62 Year
  Sex: Female
  Weight: 58.1 kg

DRUGS (36)
  1. NEXIUM [Suspect]
     Active Substance: ESOMEPRAZOLE MAGNESIUM
     Indication: GASTROOESOPHAGEAL REFLUX DISEASE
     Route: 048
     Dates: start: 20120901
  2. GENERIC CARDIZAM [Concomitant]
     Indication: BLOOD PRESSURE ABNORMAL
     Route: 048
  3. ELIQUIS [Concomitant]
     Active Substance: APIXABAN
     Indication: THROMBOSIS
  4. ANORO ELLIPTA [Concomitant]
     Active Substance: UMECLIDINIUM BROMIDE\VILANTEROL TRIFENATATE
  5. SYMBICORT [Suspect]
     Active Substance: BUDESONIDE\FORMOTEROL FUMARATE DIHYDRATE
     Indication: EMPHYSEMA
     Route: 055
     Dates: end: 20180912
  6. SYMBICORT [Suspect]
     Active Substance: BUDESONIDE\FORMOTEROL FUMARATE DIHYDRATE
     Indication: EMPHYSEMA
     Dosage: 160/4.5 MCG TWO PUFF TWO TIMES A DAY
     Route: 055
     Dates: start: 201812
  7. AMLODIPINE BESYLATE. [Concomitant]
     Active Substance: AMLODIPINE BESYLATE
     Indication: BLOOD PRESSURE ABNORMAL
     Route: 048
  8. XANAX [Concomitant]
     Active Substance: ALPRAZOLAM
     Indication: NERVOUSNESS
     Route: 048
  9. OMEPRAZOLE. [Suspect]
     Active Substance: OMEPRAZOLE
     Indication: GASTROOESOPHAGEAL REFLUX DISEASE
     Route: 048
     Dates: start: 20120901
  10. DALIRESP [Suspect]
     Active Substance: ROFLUMILAST
     Indication: EMPHYSEMA
     Dosage: 250.0UG UNKNOWN
     Route: 048
  11. PANTOPRAZOLE [Concomitant]
     Active Substance: PANTOPRAZOLE
     Indication: GASTROOESOPHAGEAL REFLUX DISEASE
     Route: 048
     Dates: start: 2010
  12. PEPCID [Concomitant]
     Active Substance: FAMOTIDINE
     Indication: ABDOMINAL DISCOMFORT
     Route: 048
  13. TYLENOL [Concomitant]
     Active Substance: ACETAMINOPHEN
  14. OMEPRAZOLE. [Suspect]
     Active Substance: OMEPRAZOLE
     Indication: GASTROOESOPHAGEAL REFLUX DISEASE
     Dosage: 40MG TWICE A DAY
     Route: 048
  15. ALBUTEROL. [Concomitant]
     Active Substance: ALBUTEROL
     Indication: EMPHYSEMA
     Dosage: 2.5MG/2ML TWO TO FOUR TIMES A DAY
     Route: 055
  16. PREDNISONE. [Concomitant]
     Active Substance: PREDNISONE
     Indication: EMPHYSEMA
     Dosage: AS REQUIRED
     Route: 048
  17. ALBUTEROL SULFATE AND IPRATROPIUM [Concomitant]
     Indication: EMPHYSEMA
     Route: 055
  18. XANAX [Concomitant]
     Active Substance: ALPRAZOLAM
     Indication: ANXIETY
     Route: 048
  19. SYMBICORT [Suspect]
     Active Substance: BUDESONIDE\FORMOTEROL FUMARATE DIHYDRATE
     Indication: EMPHYSEMA
     Dosage: 160/4.5 MCG TWO PUFF TWO TIMES A DAY
     Route: 055
     Dates: start: 201712
  20. SYMBICORT [Suspect]
     Active Substance: BUDESONIDE\FORMOTEROL FUMARATE DIHYDRATE
     Indication: CHRONIC OBSTRUCTIVE PULMONARY DISEASE
     Route: 055
     Dates: end: 20180912
  21. SPIRIVA [Concomitant]
     Active Substance: TIOTROPIUM BROMIDE MONOHYDRATE
     Indication: EMPHYSEMA
     Dosage: 1 PUFF DAILY
     Route: 055
  22. VITAMIN B NOS [Concomitant]
     Active Substance: VITAMIN B
     Indication: HYPOVITAMINOSIS
     Route: 048
  23. VITAMIN D [Concomitant]
     Active Substance: VITAMIN D NOS
     Indication: HYPOVITAMINOSIS
     Route: 048
  24. ADVAIR HFA [Concomitant]
     Active Substance: FLUTICASONE PROPIONATE\SALMETEROL XINAFOATE
  25. SYMBICORT [Suspect]
     Active Substance: BUDESONIDE\FORMOTEROL FUMARATE DIHYDRATE
     Indication: CHRONIC OBSTRUCTIVE PULMONARY DISEASE
     Dosage: 160/4.5 MCG TWO PUFF TWO TIMES A DAY
     Route: 055
     Dates: start: 201712
  26. SYMBICORT [Suspect]
     Active Substance: BUDESONIDE\FORMOTEROL FUMARATE DIHYDRATE
     Indication: CHRONIC OBSTRUCTIVE PULMONARY DISEASE
     Dosage: 160/4.5 MCG TWO PUFF TWO TIMES A DAY
     Route: 055
     Dates: start: 201812
  27. EPLERENONE. [Concomitant]
     Active Substance: EPLERENONE
     Indication: BLOOD PRESSURE ABNORMAL
     Route: 048
  28. LEVOCETRIZINE HCL [Concomitant]
     Indication: MULTIPLE ALLERGIES
     Route: 048
  29. THEOPHYLLINE [Concomitant]
     Active Substance: THEOPHYLLINE ANHYDROUS
     Indication: EMPHYSEMA
     Route: 048
  30. INSPRA [Concomitant]
     Active Substance: EPLERENONE
     Route: 048
  31. BABY ASPRIN [Concomitant]
     Active Substance: ASPIRIN
     Dosage: EVERY OTHER DAY
     Route: 048
  32. IPRATROPIUM [Concomitant]
     Active Substance: IPRATROPIUM
  33. NEXIUM [Suspect]
     Active Substance: ESOMEPRAZOLE MAGNESIUM
     Indication: GASTROOESOPHAGEAL REFLUX DISEASE
     Route: 048
     Dates: start: 2003
  34. BUDESONIDE. [Suspect]
     Active Substance: BUDESONIDE
     Dosage: 0.5ML/2ML TWICE A DAY
     Route: 055
     Dates: start: 2004
  35. FORADIL [Concomitant]
     Active Substance: FORMOTEROL FUMARATE
     Indication: EMPHYSEMA
     Dosage: 1 PUFF TWO TIMES A DAY
     Route: 055
  36. PRAVASTATIN. [Concomitant]
     Active Substance: PRAVASTATIN
     Indication: BLOOD CHOLESTEROL ABNORMAL
     Route: 048

REACTIONS (33)
  - Lung neoplasm malignant [Unknown]
  - Hernia [Unknown]
  - Abdominal discomfort [Unknown]
  - Intentional device misuse [Not Recovered/Not Resolved]
  - Nervousness [Not Recovered/Not Resolved]
  - Thrombosis [Unknown]
  - Depressed mood [Unknown]
  - Memory impairment [Unknown]
  - Lung disorder [Unknown]
  - Diverticulitis [Unknown]
  - Eye haemorrhage [Not Recovered/Not Resolved]
  - Condition aggravated [Not Recovered/Not Resolved]
  - Back pain [Unknown]
  - Inability to afford medication [Unknown]
  - Rectal haemorrhage [Recovered/Resolved]
  - Colitis [Recovered/Resolved with Sequelae]
  - Visual impairment [Unknown]
  - Off label use [Unknown]
  - Incorrect dosage administered [Not Recovered/Not Resolved]
  - Off label use of device [Unknown]
  - Neoplasm malignant [Unknown]
  - Dyspnoea [Not Recovered/Not Resolved]
  - Skin mass [Unknown]
  - Chronic obstructive pulmonary disease [Unknown]
  - Emphysema [Unknown]
  - Angiopathy [Unknown]
  - Pain in extremity [Unknown]
  - Gastrooesophageal reflux disease [Recovering/Resolving]
  - Body height decreased [Not Recovered/Not Resolved]
  - Oropharyngeal discomfort [Unknown]
  - Dysphonia [Unknown]
  - Drug ineffective [Unknown]
  - Device malfunction [Not Recovered/Not Resolved]

NARRATIVE: CASE EVENT DATE: 2003
